FAERS Safety Report 13755122 (Version 2)
Quarter: 2017Q3

REPORT INFORMATION
  Report Type: Spontaneous
  Country: CA (occurrence: CA)
  Receive Date: 20170714
  Receipt Date: 20170724
  Transmission Date: 20171127
  Serious: Yes (Hospitalization, Other)
  Sender: FDA-Public Use
  Company Number: CA-PFIZER INC-2017302860

PATIENT
  Age: 10 Month
  Sex: Female

DRUGS (1)
  1. ADVIL PEDIATRIC DROPS [Suspect]
     Active Substance: IBUPROFEN
     Indication: TEETHING
     Dosage: A COUPLE DOSES
     Dates: start: 201610

REACTIONS (2)
  - Small intestinal ulcer haemorrhage [Recovered/Resolved]
  - Blood count abnormal [Recovered/Resolved]
